FAERS Safety Report 12690147 (Version 2)
Quarter: 2016Q3

REPORT INFORMATION
  Report Type: Spontaneous
  Country: JP (occurrence: JP)
  Receive Date: 20160826
  Receipt Date: 20160907
  Transmission Date: 20161109
  Serious: Yes (Death, Other)
  Sender: FDA-Public Use
  Company Number: PHHY2015JP128769

PATIENT
  Age: 43 Year
  Sex: Male

DRUGS (2)
  1. VOTRIENT [Suspect]
     Active Substance: PAZOPANIB HYDROCHLORIDE
     Dosage: 400 MG, QD
     Route: 048
     Dates: start: 20150101
  2. VOTRIENT [Suspect]
     Active Substance: PAZOPANIB HYDROCHLORIDE
     Indication: MALIGNANT FIBROUS HISTIOCYTOMA
     Dosage: 800 MG, QD
     Route: 048
     Dates: start: 20141217

REACTIONS (9)
  - Platelet count decreased [Recovering/Resolving]
  - Anaemia [Unknown]
  - Metastases to peritoneum [Unknown]
  - Condition aggravated [Fatal]
  - Abdominal distension [Fatal]
  - Concomitant disease progression [Recovering/Resolving]
  - Ascites [Fatal]
  - Tumour haemorrhage [Unknown]
  - Metastases to liver [Unknown]
